FAERS Safety Report 21424333 (Version 1)
Quarter: 2022Q4

REPORT INFORMATION
  Report Type: Report from Study
  Country: CH (occurrence: CH)
  Receive Date: 20221007
  Receipt Date: 20221007
  Transmission Date: 20230112
  Serious: Yes (Other)
  Sender: FDA-Public Use
  Company Number: CH-UCBSA-2022058515

PATIENT
  Age: 0 Year
  Sex: Female
  Weight: 3.65 kg

DRUGS (2)
  1. CIMZIA [Suspect]
     Active Substance: CERTOLIZUMAB PEGOL
     Indication: Psoriasis
     Dosage: 200 MILLIGRAM, EV 2 WEEKS(QOW)
     Route: 064
     Dates: start: 20210202, end: 20211126
  2. CIMZIA [Suspect]
     Active Substance: CERTOLIZUMAB PEGOL
     Indication: Psoriatic arthropathy
     Dosage: 200 MILLIGRAM, EV 2 WEEKS(QOW)
     Route: 063
     Dates: start: 20211126

REACTIONS (5)
  - Postmature baby [Recovered/Resolved]
  - Maternal exposure before pregnancy [Unknown]
  - Maternal exposure during pregnancy [Unknown]
  - Oral infection [Unknown]
  - Exposure via breast milk [Unknown]

NARRATIVE: CASE EVENT DATE: 20210202
